FAERS Safety Report 9482387 (Version 3)
Quarter: 2013Q4

REPORT INFORMATION
  Report Type: Spontaneous
  Country: US (occurrence: US)
  Receive Date: 20130828
  Receipt Date: 20131004
  Transmission Date: 20140711
  Serious: Yes (Death, Other)
  Sender: FDA-Public Use
  Company Number: US-PFIZER INC-2013242250

PATIENT
  Age: 45 Year
  Sex: Female

DRUGS (3)
  1. PROTONIX [Suspect]
     Indication: ABDOMINAL PAIN
     Dosage: 40 MG, 1X/DAY
     Route: 048
     Dates: start: 20130424
  2. LYRICA [Suspect]
     Dosage: UNK
  3. ZOLOFT [Suspect]
     Dosage: UNK

REACTIONS (1)
  - Road traffic accident [Fatal]
